FAERS Safety Report 7872705 (Version 5)
Quarter: 2013Q4

REPORT INFORMATION
  Report Type: Spontaneous
  Country: US (occurrence: US)
  Receive Date: 20110325
  Receipt Date: 20131206
  Transmission Date: 20140711
  Serious: Yes (Hospitalization, Other)
  Sender: FDA-Public Use
  Company Number: US-BAYER-2011-026181

PATIENT
  Age: 31 Year
  Sex: Female
  Weight: 54.42 kg

DRUGS (22)
  1. YASMIN [Suspect]
     Indication: MENORRHAGIA
     Dosage: UNK UNK, QD
     Route: 048
     Dates: start: 20081022, end: 20090727
  2. YASMIN [Suspect]
     Indication: ORAL CONTRACEPTION
  3. YASMIN [Suspect]
     Indication: PREMENSTRUAL SYNDROME
  4. OCELLA [Suspect]
     Indication: ORAL CONTRACEPTION
     Dosage: UNK UNK, QD
     Dates: start: 20081022, end: 20090727
  5. OCELLA [Suspect]
     Indication: MENORRHAGIA
  6. OCELLA [Suspect]
     Indication: PREMENSTRUAL SYNDROME
  7. PROMETHAZINE [Concomitant]
     Indication: NAUSEA
     Dosage: 25MG HALF TABLET EVERY 6 HOURS AS NEEDED
     Route: 048
     Dates: start: 20090222
  8. OMEPRAZOLE [Concomitant]
     Dosage: 40 MG, QD
  9. DESOGEN [DESOGESTREL,ETHINYLESTRADIOL] [Concomitant]
     Dosage: UNK
     Dates: start: 2001
  10. DESOGEN [DESOGESTREL,ETHINYLESTRADIOL] [Concomitant]
     Dosage: UNK
  11. ACETAMINOPHEN W/OXYCODONE [Concomitant]
     Indication: PAIN
     Dosage: 5MG-325MG TABLETS. ONE TABLET EVERY 6 HOURS AS NEEDED
     Route: 048
     Dates: start: 20090222
  12. FLAGYL [Concomitant]
  13. PRENATAL VITAMINS [Concomitant]
  14. SUDAFED [Concomitant]
  15. AFRIN [OXYMETAZOLINE] [Concomitant]
  16. MOTRIN [Concomitant]
  17. DOCUSATE SODIUM [Concomitant]
  18. CLINDESSE [Concomitant]
  19. ZOLPIDEM [Concomitant]
  20. HYDROMORPHONE [Concomitant]
  21. HYPERCARE [Concomitant]
  22. LO/OVRAL [Concomitant]

REACTIONS (4)
  - Gallbladder disorder [None]
  - Biliary dyskinesia [None]
  - Cholecystitis chronic [None]
  - Pain [None]
